FAERS Safety Report 14388037 (Version 2)
Quarter: 2018Q3

REPORT INFORMATION
  Report Type: Spontaneous
  Country: US (occurrence: US)
  Receive Date: 20180115
  Receipt Date: 20180813
  Transmission Date: 20181010
  Serious: Yes (Other)
  Sender: FDA-Public Use
  Company Number: US-SA-2017SA207381

PATIENT
  Age: 40 Year
  Sex: Female
  Weight: 95.7 kg

DRUGS (13)
  1. ZOFRAN [ONDANSETRON HYDROCHLORIDE] [Concomitant]
     Route: 065
  2. VITAMIN D [Concomitant]
     Active Substance: CHOLECALCIFEROL
     Dosage: UNK UNK, UNK
     Route: 065
  3. ATIVAN [Concomitant]
     Active Substance: LORAZEPAM
     Dosage: UNK UNK, UNK
     Route: 065
  4. IBUPROFEN. [Concomitant]
     Active Substance: IBUPROFEN
     Dosage: UNK UNK, UNK
     Route: 065
  5. CITALOPRAM [Concomitant]
     Active Substance: CITALOPRAM HYDROBROMIDE
     Dosage: UNK UNK, UNK
     Route: 065
  6. TRAMADOL. [Concomitant]
     Active Substance: TRAMADOL
     Dosage: UNK UNK, UNK
     Route: 065
  7. NOVOLOG [Concomitant]
     Active Substance: INSULIN ASPART
  8. PARAPLATIN [Concomitant]
     Active Substance: CARBOPLATIN
     Dosage: UNK UNK, UNK
     Route: 065
  9. AMBIEN [Concomitant]
     Active Substance: ZOLPIDEM TARTRATE
     Dosage: UNK UNK, UNK
     Route: 065
  10. TAXOTERE [Suspect]
     Active Substance: DOCETAXEL
     Dosage: 145 MG, Q3W
     Route: 042
     Dates: start: 20090608, end: 20090608
  11. TAXOTERE [Suspect]
     Active Substance: DOCETAXEL
     Indication: BREAST CANCER FEMALE
     Dosage: 145 MG, Q3W
     Route: 042
     Dates: start: 20090223, end: 20090223
  12. OXYCODONE [Concomitant]
     Active Substance: OXYCODONE
     Dosage: UNK UNK, UNK
     Route: 065
  13. TAMOXIFEN [Concomitant]
     Active Substance: TAMOXIFEN
     Dosage: UNK UNK, UNK
     Route: 065
     Dates: start: 20090913

REACTIONS (1)
  - Alopecia [Not Recovered/Not Resolved]

NARRATIVE: CASE EVENT DATE: 20091208
